FAERS Safety Report 17618503 (Version 1)
Quarter: 2020Q2

REPORT INFORMATION
  Report Type: Spontaneous
  Country: US (occurrence: US)
  Receive Date: 20200402
  Receipt Date: 20200402
  Transmission Date: 20200713
  Serious: No
  Sender: FDA-Public Use
  Company Number: US-ROCHE-2439891

PATIENT
  Sex: Female
  Weight: 49.03 kg

DRUGS (1)
  1. ERIVEDGE [Suspect]
     Active Substance: VISMODEGIB
     Indication: BASAL CELL CARCINOMA
     Route: 048
     Dates: start: 20190703

REACTIONS (5)
  - Mouth injury [Unknown]
  - Burning sensation [Unknown]
  - Pyrexia [Unknown]
  - Inflammation [Unknown]
  - Pain in extremity [Unknown]
